FAERS Safety Report 10749182 (Version 1)
Quarter: 2015Q1

REPORT INFORMATION
  Report Type: Report from Study
  Country: GB (occurrence: GB)
  Receive Date: 20150129
  Receipt Date: 20150129
  Transmission Date: 20150721
  Serious: Yes (Other)
  Sender: FDA-Public Use
  Company Number: GB-AMGEN-2014-2318

PATIENT
  Age: 50 Year
  Sex: Female

DRUGS (4)
  1. CYCLOPHOSPHAMIDE. [Concomitant]
     Active Substance: CYCLOPHOSPHAMIDE
     Indication: PLASMA CELL MYELOMA
     Dosage: FREQ. TEXT: DAYS 1-8
     Route: 048
     Dates: start: 20140918
  2. LENALIDOMIDE [Concomitant]
     Active Substance: LENALIDOMIDE
     Indication: PLASMA CELL MYELOMA
     Dosage: FREQ. TEXT: DAYS 1-20
     Route: 048
     Dates: start: 20140918
  3. CARFILZOMIB [Suspect]
     Active Substance: CARFILZOMIB
     Indication: PLASMA CELL MYELOMA
     Dosage: FREQ. TEXT: DAYS 2,5,9,10,16,17
     Route: 042
     Dates: start: 20140919
  4. DEXAMETHASONE. [Concomitant]
     Active Substance: DEXAMETHASONE
     Indication: PLASMA CELL MYELOMA
     Dosage: FREQ. TEXT: DAYS 1-4, 8, 9, 15, 16
     Route: 048
     Dates: start: 20140918

REACTIONS (1)
  - Soft tissue infection [Recovered/Resolved with Sequelae]

NARRATIVE: CASE EVENT DATE: 20141018
